FAERS Safety Report 18387202 (Version 1)
Quarter: 2020Q4

REPORT INFORMATION
  Report Type: Spontaneous
  Country: ES (occurrence: ES)
  Receive Date: 20201015
  Receipt Date: 20201015
  Transmission Date: 20210114
  Serious: Yes (Life-Threatening, Hospitalization)
  Sender: FDA-Public Use
  Company Number: NVSC2020ES276042

PATIENT
  Age: 79 Year
  Sex: Female
  Weight: 69 kg

DRUGS (10)
  1. ATOZET [Concomitant]
     Active Substance: ATORVASTATIN CALCIUM\EZETIMIBE
     Indication: HYPERCHOLESTEROLAEMIA
     Dosage: 1 DF, QD
     Route: 065
     Dates: start: 20170925
  2. EUCREAS [Suspect]
     Active Substance: METFORMIN HYDROCHLORIDE\VILDAGLIPTIN
     Indication: TYPE 2 DIABETES MELLITUS
     Dosage: 1 DF, QD
     Route: 065
     Dates: start: 20170503, end: 20200929
  3. CINITAPRIDA [Concomitant]
     Active Substance: CINITAPRIDE
     Indication: DYSPEPSIA
     Dosage: 1 MG, Q8H
     Route: 065
     Dates: start: 20170206
  4. ELORGAN [Concomitant]
     Indication: CEREBRAL ARTERY OCCLUSION
     Dosage: 400 MG, Q8H
     Route: 065
     Dates: start: 20120627
  5. TOUJEO [Concomitant]
     Active Substance: INSULIN GLARGINE
     Indication: TYPE 2 DIABETES MELLITUS
     Dosage: 40 IU, QD
     Route: 065
     Dates: start: 20170201
  6. INVOKANA [Suspect]
     Active Substance: CANAGLIFLOZIN
     Indication: TYPE 2 DIABETES MELLITUS
     Dosage: 100 MG, QD
     Route: 065
     Dates: start: 20170201, end: 20200929
  7. PRANDIN [Concomitant]
     Active Substance: REPAGLINIDE
     Indication: TYPE 2 DIABETES MELLITUS
     Dosage: 2 MG, Q8H
     Route: 065
     Dates: start: 20151214, end: 20200929
  8. ENALAPRIL [Concomitant]
     Active Substance: ENALAPRIL
     Indication: PRODUCT USED FOR UNKNOWN INDICATION
     Dosage: 10 MG, QD
     Route: 065
     Dates: start: 20200805
  9. AXIAGO [Concomitant]
     Active Substance: ESOMEPRAZOLE MAGNESIUM
     Indication: GASTROOESOPHAGEAL REFLUX DISEASE
     Dosage: 20 MG, QD
     Route: 065
     Dates: start: 20170729
  10. FENOFIBRATO [Concomitant]
     Active Substance: FENOFIBRATE
     Indication: HYPERTRIGLYCERIDAEMIA
     Dosage: 145 MG, QD
     Route: 065
     Dates: start: 20190617

REACTIONS (3)
  - Diabetic ketoacidosis [Recovering/Resolving]
  - Metabolic acidosis [Recovering/Resolving]
  - Diabetic ketoacidosis [Recovered/Resolved]

NARRATIVE: CASE EVENT DATE: 20200726
